FAERS Safety Report 6297809-9 (Version None)
Quarter: 2009Q3

REPORT INFORMATION
  Report Type: 
  Country: None (occurrence: None)
  Receive Date: 20090805
  Receipt Date: 20090406
  Transmission Date: 20100115
  Serious: Yes (Hospitalization, Other)
  Sender: FDA-Public Use
  Company Number: PHHY2009JP13357

PATIENT
  Sex: Male

DRUGS (22)
  1. CERTICAN [Suspect]
     Indication: HEART TRANSPLANT
     Dosage: 0.25MG/DAY
     Route: 048
     Dates: start: 20080722, end: 20080725
  2. CERTICAN [Suspect]
     Dosage: 0.50MG/DAY
     Route: 048
     Dates: start: 20080726, end: 20080730
  3. CERTICAN [Suspect]
     Dosage: 1.00MG/DAY
     Route: 048
     Dates: start: 20080731, end: 20080808
  4. CERTICAN [Suspect]
     Dosage: 2.0MG/DAY
     Route: 048
     Dates: start: 20080809, end: 20080822
  5. CERTICAN [Suspect]
     Dosage: 3.5MG/DAY
     Route: 048
     Dates: start: 20080823, end: 20080906
  6. CERTICAN [Suspect]
     Dosage: 4.50MG/DAY
     Route: 048
     Dates: start: 20080907, end: 20080916
  7. CERTICAN [Suspect]
     Dosage: 4.25MG/DAY
     Route: 048
     Dates: start: 20080917, end: 20080927
  8. CERTICAN [Suspect]
     Dosage: 4.75M/DAY
     Route: 048
     Dates: start: 20080928, end: 20081008
  9. CERTICAN [Suspect]
     Dosage: 5.5MG/DAY
     Route: 048
     Dates: start: 20081009, end: 20081017
  10. CERTICAN [Suspect]
     Dosage: 5.75MG/DAY
     Route: 048
     Dates: start: 20081018, end: 20081028
  11. CERTICAN [Suspect]
     Dosage: 6.00MG/DAY
     Route: 048
     Dates: start: 20081029
  12. INOVAN [Suspect]
     Indication: CARDIAC FAILURE CONGESTIVE
     Dosage: UNK
     Dates: start: 20080902
  13. NEORAL [Concomitant]
     Indication: HEART TRANSPLANT
     Dosage: 225MG
     Route: 048
  14. NEORAL [Concomitant]
     Dosage: 125MG
     Route: 048
  15. NEORAL [Concomitant]
     Dosage: 100MG
     Route: 048
  16. NEORAL [Concomitant]
     Dosage: 150MG
     Route: 048
  17. NEORAL [Concomitant]
     Dosage: 100MG
     Route: 048
  18. NEORAL [Concomitant]
     Dosage: 50MG
  19. NEORAL [Concomitant]
     Dosage: 100MG
     Dates: end: 20081009
  20. RENIVACE [Concomitant]
     Indication: HYPERTENSION
     Dosage: 2.5MG
  21. DIART [Concomitant]
     Indication: CARDIAC FAILURE
     Dosage: 60 MG
     Route: 048
  22. ALDACTONE [Concomitant]

REACTIONS (7)
  - BACTERIAL INFECTION [None]
  - BLOOD ALKALINE PHOSPHATASE INCREASED [None]
  - GAMMA-GLUTAMYLTRANSFERASE INCREASED [None]
  - NECROSIS [None]
  - PYREXIA [None]
  - SEPSIS [None]
  - SUBCUTANEOUS ABSCESS [None]
